FAERS Safety Report 16684211 (Version 1)
Quarter: 2019Q3

REPORT INFORMATION
  Report Type: Spontaneous
  Country: US (occurrence: US)
  Receive Date: 20190808
  Receipt Date: 20190808
  Transmission Date: 20191004
  Serious: No
  Sender: FDA-Public Use
  Company Number: US-CELGENEUS-USA-20190801536

PATIENT

DRUGS (24)
  1. KEYTRUDA [Concomitant]
     Active Substance: PEMBROLIZUMAB
     Indication: PRODUCT USED FOR UNKNOWN INDICATION
     Dosage: 100 MG/4 ML
     Route: 065
  2. RITUXAN [Concomitant]
     Active Substance: RITUXIMAB
     Dosage: 500 MG VIAL 50 ML
     Route: 065
  3. FLUOROURACIL PBP [Concomitant]
     Indication: PRODUCT USED FOR UNKNOWN INDICATION
     Dosage: 2.5 GM / 50 ML
     Route: 065
  4. BAVENCIO [Concomitant]
     Active Substance: AVELUMAB
     Indication: PRODUCT USED FOR UNKNOWN INDICATION
     Dosage: 200MG/10 ML VIAL
     Route: 065
  5. LEVOLEUCOVORIN. [Concomitant]
     Active Substance: LEVOLEUCOVORIN
     Indication: PRODUCT USED FOR UNKNOWN INDICATION
     Dosage: 175 MG/17.5 ML
     Route: 065
  6. ETOPOSIDE MD [Concomitant]
     Indication: PRODUCT USED FOR UNKNOWN INDICATION
     Dosage: 500 MG/ 25 ML
     Route: 065
  7. IMFINZI SDV [Concomitant]
     Indication: PRODUCT USED FOR UNKNOWN INDICATION
     Route: 065
  8. XGEVA P-FCS [Concomitant]
     Indication: PRODUCT USED FOR UNKNOWN INDICATION
     Dosage: 120 MG SDV 1.7 ML
     Route: 065
  9. ALIMTA P-FCS [Concomitant]
     Indication: PRODUCT USED FOR UNKNOWN INDICATION
     Dosage: VIAL
     Route: 065
  10. AVASTIN [Concomitant]
     Active Substance: BEVACIZUMAB
     Indication: PRODUCT USED FOR UNKNOWN INDICATION
     Dosage: 100MG/4 ML VIAL
     Route: 065
  11. AVASTIN [Concomitant]
     Active Substance: BEVACIZUMAB
     Dosage: 400MG/16 ML VIAL
     Route: 065
  12. VECTIBIX P- FCS [Concomitant]
     Indication: PRODUCT USED FOR UNKNOWN INDICATION
     Dosage: 400 MG/ 20 ML
     Route: 065
  13. ZARXIO [Concomitant]
     Active Substance: FILGRASTIM-SNDZ
     Indication: PRODUCT USED FOR UNKNOWN INDICATION
     Dosage: 480 MCG SYG 10X0.8 ML
     Route: 065
  14. CARBOPLATIN MDV [Concomitant]
     Indication: PRODUCT USED FOR UNKNOWN INDICATION
     Dosage: 450 MG 45 ML
     Route: 065
  15. CINVANTI P-FCS [Concomitant]
     Indication: PRODUCT USED FOR UNKNOWN INDICATION
     Dosage: 130MG/18 ML
     Route: 065
  16. ALIMTA P-FCS [Concomitant]
     Dosage: VIAL
     Route: 065
  17. GEMCITABINE MDV [Concomitant]
     Indication: PRODUCT USED FOR UNKNOWN INDICATION
     Dosage: 1 GM 10 ML
     Route: 065
  18. TEMSIROLIMUS KIT [Concomitant]
     Indication: PRODUCT USED FOR UNKNOWN INDICATION
     Route: 065
  19. FERAHEME P-FCS [Concomitant]
     Indication: PRODUCT USED FOR UNKNOWN INDICATION
     Dosage: 510 MG/ 17 ML SDV
     Route: 065
  20. ABRAXANE [Suspect]
     Active Substance: PACLITAXEL
     Indication: PRODUCT USED FOR UNKNOWN INDICATION
     Dosage: P-FCS 100MG LYO 50ML
     Route: 041
  21. NEULASTA [Concomitant]
     Active Substance: PEGFILGRASTIM
     Indication: PRODUCT USED FOR UNKNOWN INDICATION
     Dosage: 6 MG/ 0.6 ML
     Route: 065
  22. PROCRIT [Concomitant]
     Active Substance: ERYTHROPOIETIN
     Indication: PRODUCT USED FOR UNKNOWN INDICATION
     Dosage: 40 M UN/ML VIAL 4X 1ML
     Route: 065
  23. RITUXAN [Concomitant]
     Active Substance: RITUXIMAB
     Indication: PRODUCT USED FOR UNKNOWN INDICATION
     Dosage: 100 MG VIAL 10 ML
     Route: 065
  24. XOLAIR PFS [Concomitant]
     Active Substance: OMALIZUMAB
     Indication: PRODUCT USED FOR UNKNOWN INDICATION
     Dosage: 150 MG/ML
     Route: 065

REACTIONS (1)
  - Drug hypersensitivity [Unknown]
